FAERS Safety Report 18118039 (Version 1)
Quarter: 2020Q3

REPORT INFORMATION
  Report Type: Spontaneous
  Country: US (occurrence: US)
  Receive Date: 20200805
  Receipt Date: 20200805
  Transmission Date: 20201103
  Serious: Yes (Hospitalization)
  Sender: FDA-Public Use
  Company Number: None

PATIENT
  Age: 61 Year
  Sex: Female

DRUGS (12)
  1. FOLIC ACID. [Concomitant]
     Active Substance: FOLIC ACID
  2. ALBUTEROL. [Concomitant]
     Active Substance: ALBUTEROL
  3. NYSTATIN. [Concomitant]
     Active Substance: NYSTATIN
  4. LEVOTHYROXIN [Concomitant]
     Active Substance: LEVOTHYROXINE
  5. NOVOLOG [Concomitant]
     Active Substance: INSULIN ASPART
  6. HYDROXYCHLOR [Concomitant]
     Active Substance: HYDROXYCHLOROQUINE
  7. LISINOPRIL. [Concomitant]
     Active Substance: LISINOPRIL
  8. TOLTERODINE [Concomitant]
     Active Substance: TOLTERODINE
  9. FLUCONAZOLE. [Concomitant]
     Active Substance: FLUCONAZOLE
  10. XELJANZ [Suspect]
     Active Substance: TOFACITINIB CITRATE
     Indication: RHEUMATOID ARTHRITIS
     Route: 048
     Dates: start: 20180222
  11. ATORVASTATIN [Concomitant]
     Active Substance: ATORVASTATIN
  12. ESCITALOPRAM [Concomitant]
     Active Substance: ESCITALOPRAM OXALATE

REACTIONS (1)
  - COVID-19 [None]

NARRATIVE: CASE EVENT DATE: 20200514
